FAERS Safety Report 4543082-9 (Version None)
Quarter: 2004Q4

REPORT INFORMATION
  Report Type: 
  Country: None (occurrence: None)
  Receive Date: 20041229
  Receipt Date: 20041217
  Transmission Date: 20050328
  Serious: Yes (Hospitalization, Other)
  Sender: FDA-Public Use
  Company Number: JP-SHR-03-014131

PATIENT
  Age: 28 Year
  Sex: Female

DRUGS (9)
  1. BETAFERON (INTERFERON BETAA -1B)INJECTION [Suspect]
     Indication: MULTIPLE SCLEROSIS
     Dosage: SEE IMAGE
     Route: 058
     Dates: start: 20020917, end: 20021115
  2. BETAFERON (INTERFERON BETAA -1B)INJECTION [Suspect]
     Indication: MULTIPLE SCLEROSIS
     Dosage: SEE IMAGE
     Route: 058
     Dates: start: 20030204, end: 20030223
  3. BETAFERON (INTERFERON BETAA -1B)INJECTION [Suspect]
     Indication: MULTIPLE SCLEROSIS
     Dosage: SEE IMAGE
     Route: 058
     Dates: start: 20030225, end: 20031005
  4. BETAFERON (INTERFERON BETAA -1B)INJECTION [Suspect]
     Indication: MULTIPLE SCLEROSIS
     Dosage: SEE IMAGE
     Route: 058
     Dates: start: 20031027, end: 20040201
  5. BETAFERON (INTERFERON BETAA -1B)INJECTION [Suspect]
     Indication: MULTIPLE SCLEROSIS
     Dosage: SEE IMAGE
     Route: 058
     Dates: start: 20040511
  6. MUCOSTA (REBAMIPIDE) [Concomitant]
  7. FERROMA (FERROUS CITRATE0 [Concomitant]
  8. BOUFUUSHOUSAN (HERBAL EXTRACTS NOS0 [Concomitant]
  9. PREDONINE TABLET [Concomitant]

REACTIONS (4)
  - ALANINE AMINOTRANSFERASE INCREASED [None]
  - ASPARTATE AMINOTRANSFERASE INCREASED [None]
  - HEPATIC FUNCTION ABNORMAL [None]
  - SKIN ULCER [None]
